FAERS Safety Report 19977714 (Version 1)
Quarter: 2021Q4

REPORT INFORMATION
  Report Type: Spontaneous
  Country: GR (occurrence: GR)
  Receive Date: 20211020
  Receipt Date: 20211020
  Transmission Date: 20220303
  Serious: Yes (Other)
  Sender: FDA-Public Use
  Company Number: GR-UCBSA-2021031505

PATIENT
  Age: 26 Year
  Sex: Female

DRUGS (5)
  1. LEVETIRACETAM [Suspect]
     Active Substance: LEVETIRACETAM
     Indication: Epilepsy
     Dosage: 1500 MILLIGRAM, QD
  2. DYDROGESTERONE [Suspect]
     Active Substance: DYDROGESTERONE
     Indication: Epilepsy
     Dosage: 1 DOSAGE FORM, QD
  3. CLOBAZAM [Concomitant]
     Active Substance: CLOBAZAM
     Indication: Epilepsy
     Dosage: UNK
  4. VALPROATE [Concomitant]
     Active Substance: VALPROIC ACID
     Indication: Epilepsy
     Dosage: 1000 MILLIGRAM
  5. VALPROATE [Concomitant]
     Active Substance: VALPROIC ACID
     Dosage: 1200 MILLIGRAM

REACTIONS (6)
  - Body mass index decreased [Unknown]
  - Seizure [Recovered/Resolved]
  - Rash [Unknown]
  - Irritability [Recovering/Resolving]
  - Aggression [Recovering/Resolving]
  - Decreased appetite [Unknown]
